FAERS Safety Report 13045823 (Version 1)
Quarter: 2016Q4

REPORT INFORMATION
  Report Type: Spontaneous
  Country: US (occurrence: US)
  Receive Date: 20161220
  Receipt Date: 20161220
  Transmission Date: 20170207
  Serious: No
  Sender: FDA-Public Use
  Company Number: US-BAYER-2016-241031

PATIENT
  Sex: Female

DRUGS (9)
  1. AMANTADINE [Concomitant]
     Active Substance: AMANTADINE
  2. KEPPRA [Concomitant]
     Active Substance: LEVETIRACETAM
  3. SIMVASTATIN. [Concomitant]
     Active Substance: SIMVASTATIN
  4. TIZANIDINE. [Concomitant]
     Active Substance: TIZANIDINE
  5. LISINOPRIL. [Concomitant]
     Active Substance: LISINOPRIL
  6. LEVOTHYROXINE SODIUM. [Concomitant]
     Active Substance: LEVOTHYROXINE SODIUM
  7. BETASERON [Suspect]
     Active Substance: INTERFERON BETA-1B
     Indication: MULTIPLE SCLEROSIS
     Dosage: 0.25 MG, QOD
     Route: 058
  8. RESTASIS [Concomitant]
     Active Substance: CYCLOSPORINE
  9. EVOXAC [Concomitant]
     Active Substance: CEVIMELINE HYDROCHLORIDE

REACTIONS (1)
  - Fatigue [Unknown]
